FAERS Safety Report 4716437-7 (Version None)
Quarter: 2005Q3

REPORT INFORMATION
  Report Type: 
  Country: None (occurrence: None)
  Receive Date: 20050719
  Receipt Date: 20050707
  Transmission Date: 20060218
  Serious: Yes (Hospitalization)
  Sender: FDA-Public Use
  Company Number: JP-JNJFOC-20041005585

PATIENT
  Sex: Female
  Weight: 43 kg

DRUGS (27)
  1. REMICADE [Suspect]
     Route: 042
  2. REMICADE [Suspect]
     Route: 042
  3. REMICADE [Suspect]
     Route: 042
  4. REMICADE [Suspect]
     Route: 042
  5. REMICADE [Suspect]
     Route: 042
  6. REMICADE [Suspect]
     Indication: RHEUMATOID ARTHRITIS
     Route: 042
  7. METHOTREXATE [Suspect]
  8. METHOTREXATE [Suspect]
     Indication: RHEUMATOID ARTHRITIS
  9. CODEINE PHOSPHATE [Concomitant]
  10. LOXOPROFEN SODIUM [Concomitant]
     Indication: RHEUMATOID ARTHRITIS
  11. PREDNISOLONE [Concomitant]
  12. PREDNISOLONE [Concomitant]
  13. PREDNISOLONE [Concomitant]
  14. PREDNISOLONE [Concomitant]
     Indication: RHEUMATOID ARTHRITIS
  15. AZULFIDINE EN-TABS [Concomitant]
     Indication: RHEUMATOID ARTHRITIS
  16. CYTOTEC [Concomitant]
     Indication: RHEUMATOID ARTHRITIS
  17. FERROMIA [Concomitant]
     Indication: RHEUMATOID ARTHRITIS
  18. BONALON [Concomitant]
     Indication: RHEUMATOID ARTHRITIS
  19. ASPARA-CA [Concomitant]
     Indication: RHEUMATOID ARTHRITIS
  20. VOLTAREN [Concomitant]
  21. FLOMOX [Concomitant]
  22. ATARAX [Concomitant]
  23. ARASENA A [Concomitant]
  24. PRIMPERAN INJ [Concomitant]
  25. NAUZELIN [Concomitant]
  26. MAGNESIUM OXIDE [Concomitant]
  27. TELEMINSOFT [Concomitant]

REACTIONS (5)
  - HEADACHE [None]
  - HERPES ZOSTER [None]
  - INFUSION RELATED REACTION [None]
  - JOINT SWELLING [None]
  - URTICARIA [None]
